FAERS Safety Report 12598336 (Version 1)
Quarter: 2016Q3

REPORT INFORMATION
  Report Type: Spontaneous
  Country: CN (occurrence: CN)
  Receive Date: 20160727
  Receipt Date: 20160727
  Transmission Date: 20161109
  Serious: Yes (Other)
  Sender: FDA-Public Use
  Company Number: US-JNJFOC-20160712117

PATIENT
  Age: 17 Year
  Sex: Female
  Weight: 50 kg

DRUGS (1)
  1. BENADRYL ALLERGY [Suspect]
     Active Substance: DIPHENHYDRAMINE HYDROCHLORIDE
     Indication: MULTIPLE ALLERGIES
     Dosage: 100 CAPLET, ONCE (10-15 AT A TIME TILL ALLGONE)
     Route: 048

REACTIONS (7)
  - Back pain [Unknown]
  - Confusional state [Recovered/Resolved]
  - Suicide attempt [Unknown]
  - Intentional overdose [Unknown]
  - Cognitive disorder [Recovered/Resolved]
  - Hypersomnia [Recovered/Resolved]
  - Vomiting [Recovered/Resolved]
